FAERS Safety Report 6151558-6 (Version None)
Quarter: 2009Q2

REPORT INFORMATION
  Report Type: 
  Country: None (occurrence: None)
  Receive Date: 20090410
  Receipt Date: 20090402
  Transmission Date: 20091009
  Serious: Yes (Other)
  Sender: FDA-Public Use
  Company Number: US-AMGEN-QUU341343

PATIENT
  Sex: Female

DRUGS (1)
  1. ENBREL [Suspect]
     Indication: RHEUMATOID ARTHRITIS
     Route: 058
     Dates: start: 20011019

REACTIONS (7)
  - ALOPECIA [None]
  - ANOREXIA [None]
  - FAECES DISCOLOURED [None]
  - INJECTION SITE HAEMORRHAGE [None]
  - INSOMNIA [None]
  - RHEUMATOID ARTHRITIS [None]
  - WEIGHT DECREASED [None]
